FAERS Safety Report 4797655-9 (Version None)
Quarter: 2005Q3

REPORT INFORMATION
  Report Type: 
  Country: None (occurrence: None)
  Receive Date: 20050929
  Receipt Date: 20050713
  Transmission Date: 20060218
  Serious: No
  Sender: FDA-Public Use
  Company Number: 05P-163-0305628-00

PATIENT
  Age: 60 Year
  Sex: Female
  Weight: 63.5036 kg

DRUGS (10)
  1. HUMIRA [Suspect]
     Indication: RHEUMATOID ARTHRITIS
     Dosage: 40 MG, 1 IN 2 WK, SUBCUTANEOUS
     Route: 058
     Dates: start: 20041101
  2. METHOTREXATE [Concomitant]
  3. BUDESONIDE [Concomitant]
  4. AZELASTINE HYDROCHLORIDE [Concomitant]
  5. NAPROXEN SODIUM [Concomitant]
  6. FOLIC ACID [Concomitant]
  7. LEVOTHYROXINE SODIUM [Concomitant]
  8. LORATADINE [Concomitant]
  9. SINGULAIR [Concomitant]
  10. BUDESONIDE [Concomitant]

REACTIONS (1)
  - INJECTION SITE REACTION [None]
